FAERS Safety Report 12228099 (Version 2)
Quarter: 2017Q2

REPORT INFORMATION
  Report Type: Spontaneous
  Country: LK (occurrence: LK)
  Receive Date: 20160401
  Receipt Date: 20170609
  Transmission Date: 20170830
  Serious: Yes (Life-Threatening, Hospitalization, Other)
  Sender: FDA-Public Use
  Company Number: LK-ACCORD-039140

PATIENT
  Age: 25 Year
  Sex: Female

DRUGS (1)
  1. AMITRIPTYLINE [Suspect]
     Active Substance: AMITRIPTYLINE
     Indication: PRODUCT USED FOR UNKNOWN INDICATION
     Dosage: STRENGTH : 25 MG
     Route: 048

REACTIONS (7)
  - Toxicity to various agents [Recovered/Resolved]
  - Cardiomyopathy [Recovered/Resolved]
  - Overdose [Unknown]
  - Retrograde amnesia [Not Recovered/Not Resolved]
  - Cardiac arrest [Recovered/Resolved]
  - Ventricular tachycardia [Recovered/Resolved]
  - Pulmonary oedema [Recovered/Resolved]
